FAERS Safety Report 14528311 (Version 2)
Quarter: 2018Q2

REPORT INFORMATION
  Report Type: Report from Study
  Country: US (occurrence: US)
  Receive Date: 20180214
  Receipt Date: 20180404
  Transmission Date: 20180711
  Serious: No
  Sender: FDA-Public Use
  Company Number: US-ALEXION PHARMACEUTICALS INC.-A201714299

PATIENT
  Age: 14 Year
  Sex: Male
  Weight: 65.6 kg

DRUGS (2)
  1. STRENSIQ [Suspect]
     Active Substance: ASFOTASE ALFA
     Indication: HYPOPHOSPHATASIA
     Dosage: 130 MG, TIW
     Route: 058
     Dates: start: 20161230
  2. STRENSIQ [Suspect]
     Active Substance: ASFOTASE ALFA
     Dosage: 130 MG, TIW
     Route: 058

REACTIONS (1)
  - Incorrect dose administered [Unknown]

NARRATIVE: CASE EVENT DATE: 20171214
